FAERS Safety Report 18858115 (Version 1)
Quarter: 2021Q1

REPORT INFORMATION
  Report Type: Spontaneous
  Country: PR (occurrence: PR)
  Receive Date: 20210205
  Receipt Date: 20210205
  Transmission Date: 20210420
  Serious: No
  Sender: FDA-Public Use
  Company Number: None

PATIENT
  Age: 42 Year
  Sex: Female
  Weight: 90 kg

DRUGS (12)
  1. ORENCIA [Suspect]
     Active Substance: ABATACEPT
     Indication: RHEUMATOID ARTHRITIS
     Dosage: ?          OTHER FREQUENCY:WEEKLY;?
     Route: 058
     Dates: start: 20200715, end: 20201101
  2. EFFEXOR [Concomitant]
     Active Substance: VENLAFAXINE HYDROCHLORIDE
  3. SYNTHROID [Concomitant]
     Active Substance: LEVOTHYROXINE SODIUM
  4. JENTADUETO [Concomitant]
     Active Substance: LINAGLIPTIN\METFORMIN HYDROCHLORIDE
  5. TOPROL XL [Concomitant]
     Active Substance: METOPROLOL SUCCINATE
  6. AMARYL [Concomitant]
     Active Substance: GLIMEPIRIDE
  7. KLONOPIN [Concomitant]
     Active Substance: CLONAZEPAM
  8. LANTUS [Concomitant]
     Active Substance: INSULIN GLARGINE
  9. AMBIEN [Concomitant]
     Active Substance: ZOLPIDEM TARTRATE
  10. PLAQUENIL [Concomitant]
     Active Substance: HYDROXYCHLOROQUINE SULFATE
  11. VASOTEC [Concomitant]
     Active Substance: ENALAPRIL MALEATE
  12. LYRICA [Concomitant]
     Active Substance: PREGABALIN

REACTIONS (4)
  - Dyspnoea [None]
  - Rash [None]
  - Pruritus [None]
  - Dermatitis [None]

NARRATIVE: CASE EVENT DATE: 20201025
